FAERS Safety Report 10156929 (Version 1)
Quarter: 2014Q2

REPORT INFORMATION
  Report Type: Spontaneous
  Country: US (occurrence: US)
  Receive Date: 20140507
  Receipt Date: 20140507
  Transmission Date: 20141212
  Serious: No
  Sender: FDA-Public Use
  Company Number: US-BAYER-2014-067133

PATIENT
  Age: 63 Year
  Sex: Male
  Weight: 82.54 kg

DRUGS (1)
  1. ALEVE CAPLET [Suspect]
     Dosage: UNK, BID
     Route: 048

REACTIONS (3)
  - Drug ineffective [None]
  - Incorrect drug administration duration [None]
  - Intentional product misuse [None]
